FAERS Safety Report 8683283 (Version 2)
Quarter: 2012Q4

REPORT INFORMATION
  Report Type: 
  Country: US (occurrence: US)
  Receive Date: 20120726
  Receipt Date: 20120911
  Transmission Date: 20130627
  Serious: Yes (Other)
  Sender: FDA-Public Use
  Company Number: US-PFIZER INC-2012179786

PATIENT
  Age: 79 Year
  Sex: Male
  Weight: 70.75 kg

DRUGS (6)
  1. LYRICA [Suspect]
     Indication: HERPES ZOSTER
     Dosage: 25 mg, 2x/day
     Route: 048
     Dates: start: 20120419
  2. LYRICA [Suspect]
     Indication: POST HERPETIC NEURALGIA
  3. LYRICA [Suspect]
     Indication: BLOOD GLUCOSE DECREASED
  4. METFORMIN HYDROCHLORIDE [Suspect]
     Indication: DIABETES MELLITUS
     Dosage: UNK
  5. METFORMIN HYDROCHLORIDE [Suspect]
     Dosage: 500 mg, 2x/day
     Dates: end: 201206
  6. NIACIN [Concomitant]
     Dosage: 750 mg, 2x/day

REACTIONS (1)
  - Hypoglycaemia [Recovered/Resolved]
